FAERS Safety Report 7533158-6 (Version None)
Quarter: 2011Q2

REPORT INFORMATION
  Report Type: 
  Country: None (occurrence: None)
  Receive Date: 20110608
  Receipt Date: 20021022
  Transmission Date: 20111010
  Serious: Yes (Hospitalization, Other)
  Sender: FDA-Public Use
  Company Number: PHBS2002CA12601

PATIENT
  Sex: Male

DRUGS (2)
  1. DIOVAN [Suspect]
     Indication: HYPERTENSION
     Dosage: 80 MG, ONCE/SINGLE
     Route: 048
     Dates: start: 20021001, end: 20021011
  2. LIPITOR [Concomitant]
     Dosage: 10 MG, QD
     Route: 048
     Dates: start: 20020927

REACTIONS (4)
  - DYSPNOEA [None]
  - VENTRICULAR TACHYCARDIA [None]
  - MYOCARDIAL INFARCTION [None]
  - CHEST PAIN [None]
